FAERS Safety Report 4707308-0 (Version None)
Quarter: 2005Q3

REPORT INFORMATION
  Report Type: 
  Country: None (occurrence: None)
  Receive Date: 20050701
  Receipt Date: 20050627
  Transmission Date: 20060218
  Serious: Yes (Other)
  Sender: FDA-Public Use
  Company Number: 2005-06-1769

PATIENT
  Age: 50 Year
  Sex: Male

DRUGS (2)
  1. VIRAFERONPEG [Suspect]
     Indication: HEPATITIS C
     Dosage: SUBCUTANEOUS
     Route: 058
     Dates: start: 19980101, end: 20030101
  2. REBETOL [Suspect]
     Indication: HEPATITIS C
     Dosage: ORAL
     Dates: start: 20010101, end: 20030101

REACTIONS (2)
  - COORDINATION ABNORMAL [None]
  - OPTIC NEUROPATHY [None]
